FAERS Safety Report 9779168 (Version 2)
Quarter: 2013Q4

REPORT INFORMATION
  Report Type: Spontaneous
  Country: US (occurrence: US)
  Receive Date: 20131223
  Receipt Date: 20131223
  Transmission Date: 20140711
  Serious: No
  Sender: FDA-Public Use
  Company Number: US-ENDO PHARMACEUTICALS INC.-OPCR20121924

PATIENT
  Age: 62 Year
  Sex: Male

DRUGS (2)
  1. OPANA ER [Suspect]
     Indication: BACK DISORDER
     Route: 048
     Dates: start: 201210
  2. OPANA ER [Suspect]
     Indication: ROTATOR CUFF SYNDROME
     Route: 048
     Dates: start: 2012, end: 20120923

REACTIONS (2)
  - Rotator cuff syndrome [Recovered/Resolved]
  - Withdrawal syndrome [Unknown]
